FAERS Safety Report 8933696 (Version 2)
Quarter: 2013Q4

REPORT INFORMATION
  Report Type: Spontaneous
  Country: GB (occurrence: GB)
  Receive Date: 20121129
  Receipt Date: 20131002
  Transmission Date: 20140711
  Serious: Yes (Life-Threatening, Hospitalization)
  Sender: FDA-Public Use
  Company Number: GB-ROCHE-1160593

PATIENT
  Age: 60 Year
  Sex: Female
  Weight: 102 kg

DRUGS (13)
  1. TOCILIZUMAB [Suspect]
     Indication: RHEUMATOID ARTHRITIS
     Route: 042
     Dates: start: 20110304, end: 20121104
  2. METHOTREXATE [Suspect]
     Indication: RHEUMATOID ARTHRITIS
     Route: 058
     Dates: start: 200806, end: 20111104
  3. ALENDRONIC ACID [Concomitant]
     Route: 065
  4. CETIRIZINE [Concomitant]
     Route: 065
  5. CITALOPRAM [Concomitant]
     Route: 048
  6. ETODOLAC [Concomitant]
     Route: 048
  7. FOLIC ACID [Concomitant]
     Route: 048
  8. LANSOPRAZOLE [Concomitant]
     Route: 048
  9. LEFLUNOMIDE [Concomitant]
     Route: 065
  10. PERINDOPRIL [Concomitant]
     Route: 048
  11. PREDNISOLONE [Concomitant]
     Route: 065
  12. TRAMADOL [Concomitant]
     Route: 065
  13. SULPHASALAZINE [Concomitant]

REACTIONS (6)
  - Alveolitis allergic [Recovering/Resolving]
  - Abdominal pain [Unknown]
  - Cough [Unknown]
  - Dyspnoea exertional [Not Recovered/Not Resolved]
  - Dyspnoea [Unknown]
  - Vomiting [Unknown]
